FAERS Safety Report 11158708 (Version 4)
Quarter: 2015Q3

REPORT INFORMATION
  Report Type: Spontaneous
  Country: JP (occurrence: JP)
  Receive Date: 20150603
  Receipt Date: 20150929
  Transmission Date: 20151125
  Serious: Yes (Death, Life-Threatening)
  Sender: FDA-Public Use
  Company Number: JP-TEVA-567261ISR

PATIENT
  Sex: Male
  Weight: 53 kg

DRUGS (18)
  1. ADRIACIN [Suspect]
     Active Substance: DOXORUBICIN HYDROCHLORIDE
     Dosage: 33 MILLIGRAM DAILY;
     Route: 042
     Dates: start: 20130314
  2. MITOTANE [Suspect]
     Active Substance: MITOTANE
     Dosage: 1.5 GRAM DAILY;
     Route: 048
  3. ETOPOSIDE. [Suspect]
     Active Substance: ETOPOSIDE
     Indication: ADRENAL GLAND CANCER
     Dosage: 165 MILLIGRAM DAILY; 165 MG, UNK
     Route: 041
     Dates: start: 20130213
  4. ETOPOSIDE. [Suspect]
     Active Substance: ETOPOSIDE
     Dates: start: 20130314
  5. CISPLATIN. [Suspect]
     Active Substance: CISPLATIN
     Indication: ADRENAL GLAND CANCER
     Dosage: 66 MG, UNK
     Route: 041
     Dates: start: 20130213
  6. ADRIACIN [Suspect]
     Active Substance: DOXORUBICIN HYDROCHLORIDE
     Dosage: 33 MILLIGRAM DAILY;
     Route: 042
     Dates: start: 20130620
  7. ETOPOSIDE. [Suspect]
     Active Substance: ETOPOSIDE
     Dates: start: 20130412
  8. ETOPOSIDE. [Suspect]
     Active Substance: ETOPOSIDE
     Dates: start: 20130516
  9. ADRIACIN [Suspect]
     Active Substance: DOXORUBICIN HYDROCHLORIDE
     Indication: ADRENAL GLAND CANCER
     Dosage: 33 MILLIGRAM DAILY;
     Route: 042
     Dates: start: 20130213
  10. CISPLATIN. [Suspect]
     Active Substance: CISPLATIN
     Dosage: 66 MG, UNK
     Route: 041
     Dates: start: 20130314
  11. CISPLATIN. [Suspect]
     Active Substance: CISPLATIN
     Dosage: 66 MG, UNK
     Route: 041
     Dates: start: 20130516
  12. CISPLATIN. [Suspect]
     Active Substance: CISPLATIN
     Dosage: 66 MG, UNK
     Route: 041
     Dates: start: 20130620
  13. ADRIACIN [Suspect]
     Active Substance: DOXORUBICIN HYDROCHLORIDE
     Dosage: 33 MILLIGRAM DAILY;
     Route: 042
     Dates: start: 20130412
  14. ADRIACIN [Suspect]
     Active Substance: DOXORUBICIN HYDROCHLORIDE
     Dosage: 33 MILLIGRAM DAILY;
     Route: 042
     Dates: start: 20130516
  15. MITOTANE [Suspect]
     Active Substance: MITOTANE
     Indication: ADRENAL GLAND CANCER
     Dosage: 2 GRAM DAILY;
     Route: 048
     Dates: start: 200802
  16. MITOTANE [Suspect]
     Active Substance: MITOTANE
     Dosage: 12 GRAM DAILY;
     Route: 048
  17. CISPLATIN. [Suspect]
     Active Substance: CISPLATIN
     Dosage: 66 MG, UNK
     Route: 041
     Dates: start: 20130412
  18. ETOPOSIDE. [Suspect]
     Active Substance: ETOPOSIDE
     Dates: start: 20130620

REACTIONS (3)
  - Adrenal insufficiency [Not Recovered/Not Resolved]
  - Sepsis [Fatal]
  - Neutropenia [Fatal]
